FAERS Safety Report 14527441 (Version 1)
Quarter: 2018Q1

REPORT INFORMATION
  Report Type: Spontaneous
  Country: US (occurrence: US)
  Receive Date: 20180213
  Receipt Date: 20180213
  Transmission Date: 20180509
  Serious: Yes (Hospitalization, Other)
  Sender: FDA-Public Use
  Company Number: US-MYLANLABS-2018M1009277

PATIENT
  Age: 4 Year
  Sex: Female

DRUGS (2)
  1. VANCOMYCIN [Suspect]
     Active Substance: VANCOMYCIN
     Indication: STAPHYLOCOCCAL INFECTION
     Dosage: 20MG/KG (360MG) EVERY 6HOURS WITH GOAL TROUGH CONCENTRATION OF 15-20MUG/ML
     Route: 042
  2. VANCOMYCIN [Suspect]
     Active Substance: VANCOMYCIN
     Dosage: 26MG/KG (470MG) EVERY 8HOURS FOR NINE DAYS
     Route: 042

REACTIONS (3)
  - Pancytopenia [Recovering/Resolving]
  - Pyrexia [Unknown]
  - Rash [Unknown]
